FAERS Safety Report 12651874 (Version 1)
Quarter: 2016Q3

REPORT INFORMATION
  Report Type: Spontaneous
  Country: US (occurrence: US)
  Receive Date: 20160815
  Receipt Date: 20160815
  Transmission Date: 20161109
  Serious: Yes (Hospitalization)
  Sender: FDA-Public Use
  Company Number: US-BAYER-2016-156254

PATIENT
  Age: 29 Year
  Sex: Female
  Weight: 52.15 kg

DRUGS (4)
  1. MIRENA [Suspect]
     Active Substance: LEVONORGESTREL
     Indication: CONTRACEPTION
     Dosage: 20 MCG/24HR, CONT
     Route: 015
     Dates: start: 20110811, end: 20130705
  2. DILAUDID [Concomitant]
     Active Substance: HYDROMORPHONE HYDROCHLORIDE
  3. IBUPROFEN. [Concomitant]
     Active Substance: IBUPROFEN
     Dosage: UNK
     Dates: start: 20130705
  4. DOXYCYCLINE. [Concomitant]
     Active Substance: DOXYCYCLINE
     Dosage: UNK
     Dates: start: 2000

REACTIONS (9)
  - Uterine perforation [None]
  - Back pain [None]
  - Anxiety [None]
  - Vomiting [None]
  - Diarrhoea [None]
  - Device dislocation [None]
  - Abdominal pain [None]
  - Hallucination [None]
  - Heart rate increased [None]

NARRATIVE: CASE EVENT DATE: 201306
